FAERS Safety Report 12082360 (Version 2)
Quarter: 2016Q2

REPORT INFORMATION
  Report Type: Spontaneous
  Country: US (occurrence: US)
  Receive Date: 20160217
  Receipt Date: 20160404
  Transmission Date: 20160815
  Serious: No
  Sender: FDA-Public Use
  Company Number: US-009507513-1602USA006995

PATIENT
  Age: 52 Year
  Sex: Female

DRUGS (2)
  1. EMEND [Suspect]
     Active Substance: APREPITANT
     Indication: PROPHYLAXIS OF NAUSEA AND VOMITING
     Dosage: ^150^
     Route: 042
     Dates: start: 20150925, end: 20160212
  2. XARELTO [Concomitant]
     Active Substance: RIVAROXABAN
     Dosage: UNK

REACTIONS (9)
  - Feeling abnormal [Recovering/Resolving]
  - Abdominal pain [Recovering/Resolving]
  - Nausea [Recovering/Resolving]
  - Back pain [Recovering/Resolving]
  - Hot flush [Recovering/Resolving]
  - Oxygen saturation decreased [Recovering/Resolving]
  - Tremor [Recovering/Resolving]
  - Flushing [Recovering/Resolving]
  - Chest discomfort [Recovering/Resolving]

NARRATIVE: CASE EVENT DATE: 20160212
